FAERS Safety Report 5697549-0 (Version None)
Quarter: 2008Q2

REPORT INFORMATION
  Report Type: 
  Country: None (occurrence: None)
  Receive Date: 20080408
  Receipt Date: 20080327
  Transmission Date: 20081010
  Serious: Yes (Other)
  Sender: FDA-Public Use
  Company Number: JP-AMGEN-US268645

PATIENT
  Sex: Male

DRUGS (2)
  1. ENBREL [Suspect]
     Indication: RHEUMATOID ARTHRITIS
     Dosage: UNSPECIFIED
     Route: 058
     Dates: start: 20080101, end: 20080201
  2. RIMATIL [Suspect]
     Dosage: UNSPECIFIED
     Route: 048

REACTIONS (1)
  - NEPHROTIC SYNDROME [None]
